FAERS Safety Report 17307066 (Version 1)
Quarter: 2020Q1

REPORT INFORMATION
  Report Type: Spontaneous
  Country: ES (occurrence: ES)
  Receive Date: 20200123
  Receipt Date: 20200123
  Transmission Date: 20200409
  Serious: Yes (Other)
  Sender: FDA-Public Use
  Company Number: ES-MYLANLABS-2020M1006626

PATIENT
  Age: 77 Year
  Sex: Female

DRUGS (11)
  1. CARVEDILOL. [Concomitant]
     Active Substance: CARVEDILOL
     Dosage: 25 MG, 2X/DAY (25 MG, 172 TABLET / 12H.)
  2. FUROSEMIDE. [Concomitant]
     Active Substance: FUROSEMIDE
     Dosage: 40 MG, 1X/DAY (1 TABLET / 24H.)
  3. ATORVASTATIN [Concomitant]
     Active Substance: ATORVASTATIN
     Dosage: 10 MG, 1X/DAY (1 TABLET / 24H.)
  4. SINTROM [Interacting]
     Active Substance: ACENOCOUMAROL
     Indication: ANTICOAGULANT THERAPY
     Dosage: 4 MG, 1X/DAY (1 TABLET / 24 HOURS)
     Route: 048
  5. LOSARTAN. [Concomitant]
     Active Substance: LOSARTAN
     Dosage: 25 MG, 1X/DAY (1 TABLET / 24H.)
  6. SPIRONOLACTONE. [Concomitant]
     Active Substance: SPIRONOLACTONE
     Dosage: 25 MG, 1X/DAY (1 TABLET / 24H.)
  7. LETROZOLE. [Suspect]
     Active Substance: LETROZOLE
     Indication: INVASIVE DUCTAL BREAST CARCINOMA
     Dosage: 1 TABLET / 24 HOURS CONTINUOUS
     Route: 048
     Dates: start: 20190501
  8. OMEPRAZOLE. [Concomitant]
     Active Substance: OMEPRAZOLE
     Dosage: 20 MG, 1X/DAY (1 TABLET / 24H.)
  9. PARACETAMOL [Concomitant]
     Active Substance: ACETAMINOPHEN
     Dosage: 650 MG, 3X/DAY (1 TABLET / 8 H.)
  10. DIGOXINE [Concomitant]
     Active Substance: DIGOXIN
     Dosage: 0.25 UNK, 1X/DAY (0.5 TABLET/24 HOURS)
  11. PALBOCICLIB [Interacting]
     Active Substance: PALBOCICLIB
     Indication: INVASIVE DUCTAL BREAST CARCINOMA
     Dosage: 125 MG, 1X/DAY (125 MG 1 CAPSULE / 24H. FOR 3 WEEKS / 28 DAYS.)
     Route: 048
     Dates: start: 20190501

REACTIONS (3)
  - Neutropenia [Unknown]
  - Prothrombin time prolonged [Unknown]
  - Drug interaction [Unknown]
